FAERS Safety Report 13183346 (Version 3)
Quarter: 2017Q1

REPORT INFORMATION
  Report Type: Spontaneous
  Country: DE (occurrence: DE)
  Receive Date: 20170203
  Receipt Date: 20170317
  Transmission Date: 20170428
  Serious: Yes (Death, Hospitalization, Other)
  Sender: FDA-Public Use
  Company Number: DE-UCBSA-2017003488

PATIENT
  Age: 45 Year
  Sex: Male

DRUGS (23)
  1. CALCIGEN D [Concomitant]
     Active Substance: CALCIUM CARBONATE\CHOLECALCIFEROL
     Indication: OSTEOPOROSIS
     Dosage: 600 MG, ONCE DAILY (QD)
     Route: 048
     Dates: start: 2012, end: 20170126
  2. FYCOMPA [Concomitant]
     Active Substance: PERAMPANEL
     Dosage: 4 MG, ONCE DAILY (QD)
     Dates: start: 20161107, end: 20161122
  3. BRIVIACT [Suspect]
     Active Substance: BRIVARACETAM
     Dosage: 150-0-100 MG, 2X/DAY (BID)
     Route: 048
     Dates: start: 20161216, end: 201612
  4. BRIVIACT [Suspect]
     Active Substance: BRIVARACETAM
     Indication: EPILEPSY
     Dosage: 100 MG, 2X/DAY (BID)
     Route: 048
     Dates: start: 20161202, end: 201612
  5. INOVELON [Concomitant]
     Active Substance: RUFINAMIDE
     Dosage: 2000 MG PER DAY
     Dates: start: 20160815, end: 20170126
  6. VIMPAT [Suspect]
     Active Substance: LACOSAMIDE
     Indication: EPILEPSY
     Dosage: 150-150-250 MG, 3X/DAY (TID)
     Route: 048
     Dates: start: 2009, end: 20170126
  7. INOVELON [Concomitant]
     Active Substance: RUFINAMIDE
     Dosage: 2200 MG PER DAY
     Dates: start: 20160808, end: 201608
  8. FYCOMPA [Concomitant]
     Active Substance: PERAMPANEL
     Dosage: 6 MG, ONCE DAILY (QD)
     Dates: start: 20160315, end: 2016
  9. BRIVIACT [Suspect]
     Active Substance: BRIVARACETAM
     Dosage: 150 MG, 2X/DAY (BID)
     Route: 048
     Dates: start: 20161220
  10. INOVELON [Concomitant]
     Active Substance: RUFINAMIDE
     Dosage: 2600 MG PER DAY
     Dates: start: 20160725, end: 2016
  11. INOVELON [Concomitant]
     Active Substance: RUFINAMIDE
     Dosage: 2400 MG PER DAY
     Dates: start: 20160801, end: 201608
  12. FYCOMPA [Concomitant]
     Active Substance: PERAMPANEL
     Dosage: 4 MG, ONCE DAILY (QD)
     Dates: start: 20160222, end: 2016
  13. FYCOMPA [Concomitant]
     Active Substance: PERAMPANEL
     Dosage: 10 MG, ONCE DAILY (QD)
     Dates: start: 20160516, end: 2016
  14. FYCOMPA [Concomitant]
     Active Substance: PERAMPANEL
     Dosage: 6 MG, ONCE DAILY (QD)
     Dates: start: 20161016, end: 2016
  15. TRANXILIUM [Concomitant]
     Active Substance: CLORAZEPATE DIPOTASSIUM
     Dosage: 10 MG, 2X/DAY (BID)
     Dates: start: 20161124, end: 20161130
  16. TEVANATE [Concomitant]
     Active Substance: ALENDRONIC ACID
     Indication: OSTEOPOROSIS
     Dosage: 70 MG, ONCE DAILY (QD)
     Route: 048
     Dates: start: 2014, end: 20170126
  17. FYCOMPA [Concomitant]
     Active Substance: PERAMPANEL
     Indication: PRODUCT USED FOR UNKNOWN INDICATION
     Dosage: 2 MG, ONCE DAILY (QD)
     Dates: start: 20160206, end: 2016
  18. FYCOMPA [Concomitant]
     Active Substance: PERAMPANEL
     Dosage: 8 MG, ONCE DAILY (QD)
     Dates: start: 20160411, end: 2016
  19. FRISIUM [Concomitant]
     Active Substance: CLOBAZAM
     Indication: SEIZURE
     Dosage: 10 MG, 2X/DAY (BID)
     Dates: start: 20161104, end: 20161123
  20. FRISIUM [Concomitant]
     Active Substance: CLOBAZAM
     Dosage: 10 MG, 2X/DAY (BID)
     Dates: start: 20161201, end: 20161207
  21. INOVELON [Concomitant]
     Active Substance: RUFINAMIDE
     Indication: EPILEPSY
     Dosage: 1400 MG, 2X/DAY (BID)
     Route: 048
     Dates: start: 201403
  22. FYCOMPA [Concomitant]
     Active Substance: PERAMPANEL
     Dosage: 8 MG, ONCE DAILY (QD)
     Dates: start: 20161011, end: 201610
  23. KEPPRA [Suspect]
     Active Substance: LEVETIRACETAM
     Indication: EPILEPSY
     Dosage: 1500 MG, 2X/DAY (BID)
     Dates: end: 20161201

REACTIONS (7)
  - Overdose [Unknown]
  - Completed suicide [Fatal]
  - Aggression [Unknown]
  - Anger [Unknown]
  - Seizure [Unknown]
  - Off label use [Unknown]
  - Drug ineffective [Unknown]

NARRATIVE: CASE EVENT DATE: 2009
